FAERS Safety Report 8826436 (Version 1)
Quarter: 2012Q4

REPORT INFORMATION
  Report Type: 
  Country: US (occurrence: US)
  Receive Date: 20121008
  Receipt Date: 20121008
  Transmission Date: 20130627
  Serious: Yes (Hospitalization)
  Sender: FDA-Public Use
  Company Number: US-BAYER-2012-102903

PATIENT
  Age: 22 Year
  Sex: Female
  Weight: 79.3 kg

DRUGS (23)
  1. YASMIN [Suspect]
     Indication: OVARIAN CYST
  2. MOTRIN [Concomitant]
     Indication: PAIN
     Dosage: 800 mg, TID with food as needed
     Route: 048
     Dates: start: 20110415
  3. IMITREX [Concomitant]
     Indication: MIGRAINE
     Dosage: 50 mg, 1 tablet at onset, may repeat after 2 hours if not relieved
     Route: 048
     Dates: start: 20110415
  4. FLUOCINOLONE ACETONIDE [Concomitant]
     Indication: SKIN LESION
     Dosage: 0.01 %,apply to affected area as needed 2 times daily
     Route: 061
     Dates: start: 20110415
  5. TEMOVATE [Concomitant]
     Dosage: 0.05 %, apply to affected area 2 times daily
     Dates: start: 20110408
  6. TEMOVATE [Concomitant]
     Dosage: UNK
     Dates: start: 20110415
  7. CALCITROL [Concomitant]
     Dosage: 3 mcg/gram, apply to affected area 2 times daily
     Route: 061
     Dates: start: 20110408
  8. CALCITROL [Concomitant]
     Dosage: UNK
     Dates: start: 20110415
  9. DIFLUCAN [Concomitant]
     Dosage: 150 mg, take 1 tablet in a single dose now
     Route: 048
     Dates: start: 20110415
  10. HYTONE [Concomitant]
     Dosage: 2.5 %, TID apply to affected area
     Route: 061
     Dates: start: 20110415
  11. VICODIN [Concomitant]
     Indication: PAIN
     Dosage: 5/50 mg, 1 tablet every 6 hours as needed
     Route: 048
     Dates: start: 20110415
  12. COLACE [Concomitant]
     Dosage: 100 mg, UNK
     Route: 048
     Dates: start: 20110415
  13. CETYLPYRIDINIUM CHLORIDE [Concomitant]
     Dosage: 2 mg, UNK
     Dates: start: 20110415
  14. SALINE [Concomitant]
     Dosage: 0.65 %, UNK
     Route: 045
     Dates: start: 20110415
  15. GYNE-LOTRIMIN [Concomitant]
     Dosage: 1 %, UNK
     Dates: start: 20110415
  16. KONSYL [Concomitant]
     Dosage: UNK
     Route: 048
     Dates: start: 20110415
  17. ROBAXIN [Concomitant]
     Dosage: 500 mg, UNK
     Route: 048
     Dates: start: 20110415
  18. DOVONEX [Concomitant]
     Dosage: 0.005 %, UKN
     Dates: start: 20110415
  19. CIPRO [Concomitant]
     Indication: URINARY TRACT INFECTION
     Dosage: UNK
     Dates: start: 20110412
  20. CEFTIN [Concomitant]
     Dosage: 500 mg, daily every 12 hours for 4 days
     Route: 048
  21. NORCO [Concomitant]
     Indication: ABDOMINAL PAIN
  22. ZOFRAN [Concomitant]
     Indication: NAUSEA
     Dosage: 4 mg, q4-6h prn
  23. ZOFRAN [Concomitant]
     Indication: VOMITING

REACTIONS (2)
  - Deep vein thrombosis [None]
  - Thrombophlebitis superficial [None]
